FAERS Safety Report 17147515 (Version 1)
Quarter: 2019Q4

REPORT INFORMATION
  Report Type: Spontaneous
  Country: DE (occurrence: DE)
  Receive Date: 20191212
  Receipt Date: 20191212
  Transmission Date: 20200122
  Serious: Yes (Hospitalization)
  Sender: FDA-Public Use
  Company Number: DE-MYLANLABS-2019M1122241

PATIENT
  Age: 92 Year
  Sex: Male

DRUGS (11)
  1. ATORVASTATIN [Concomitant]
     Active Substance: ATORVASTATIN
     Dosage: 40 MG, 0-0-1-0
  2. TORASEMIDE [Suspect]
     Active Substance: TORSEMIDE
     Indication: PRODUCT USED FOR UNKNOWN INDICATION
     Dosage: 5 MILLIGRAM, QD (5 MG, 1-0-0-0)
  3. LACOSAMIDA [Concomitant]
     Active Substance: LACOSAMIDE
     Dosage: 100 MILLIGRAM, BID (50 MG, 2-0-2-0)
  4. MIRTAZAPIN [Concomitant]
     Active Substance: MIRTAZAPINE
     Dosage: 15 MILLIGRAM, QD (15 MG, 0-0-0-1)
  5. PRAMIPEXOL                         /01356401/ [Concomitant]
     Active Substance: PRAMIPEXOLE
     Dosage: 1.5 DOSAGE FORM, QD (0.35 MG, 0-0.5-1-0)
  6. THEOPHYLLIN [Concomitant]
     Active Substance: THEOPHYLLINE ANHYDROUS
     Dosage: 375 MILLIGRAM,BID (375 MG, 1-0-1-0)
  7. BALDRIANWURZEL [Concomitant]
     Dosage: 1 DOSAGE FORM, QD (NK MG, 0-0-0-1)
  8. ACETYLSALICYLSAEURE [Concomitant]
     Active Substance: ASPIRIN
     Dosage: 100 MG, 0-1-0-0
  9. OMEPRAZOL                          /00661201/ [Concomitant]
     Active Substance: OMEPRAZOLE
     Dosage: 20 MILLIGRAM, QD (20 MG, 1-0-0-0)
  10. LEVODOPA/CARBIDOPA [Concomitant]
     Active Substance: CARBIDOPA\LEVODOPA
     Dosage: 5 DOSAGE FORM, QD (100|25 MG, 1-2-2-0)
  11. RAMIPRIL. [Concomitant]
     Active Substance: RAMIPRIL
     Dosage: 1.25 MILLIGRAM, QD (2.5 MG, 0-0-0.5-0)

REACTIONS (2)
  - Confusional state [Recovered/Resolved]
  - Skin turgor decreased [Recovered/Resolved]
